FAERS Safety Report 6689173-8 (Version None)
Quarter: 2010Q2

REPORT INFORMATION
  Report Type: 
  Country: None (occurrence: None)
  Receive Date: 20100415
  Receipt Date: 20100402
  Transmission Date: 20101027
  Serious: Yes (Hospitalization, Other)
  Sender: FDA-Public Use
  Company Number: 2009-198567-NL

PATIENT
  Age: 21 Year
  Sex: Female
  Weight: 69.4003 kg

DRUGS (3)
  1. NUVARING [Suspect]
     Indication: CONTRACEPTION
     Dates: start: 20070122, end: 20080818
  2. CEPHALEXIN [Concomitant]
  3. AMITRIPTYLENE [Concomitant]

REACTIONS (22)
  - ADNEXA UTERI CYST [None]
  - BRONCHITIS [None]
  - CULTURE URINE POSITIVE [None]
  - DECREASED APPETITE [None]
  - DEPRESSED MOOD [None]
  - DYSMENORRHOEA [None]
  - DYSPAREUNIA [None]
  - ESCHERICHIA INFECTION [None]
  - GASTROENTERITIS [None]
  - HEADACHE [None]
  - HYPEREMESIS GRAVIDARUM [None]
  - MENSTRUATION DELAYED [None]
  - MIGRAINE [None]
  - MYOCARDIAL INFARCTION [None]
  - PARAESTHESIA [None]
  - PELVIC PAIN [None]
  - PULMONARY EMBOLISM [None]
  - UTERINE HAEMORRHAGE [None]
  - VAGINITIS BACTERIAL [None]
  - VIRAL INFECTION [None]
  - VIRAL UPPER RESPIRATORY TRACT INFECTION [None]
  - WEIGHT DECREASED [None]
